FAERS Safety Report 20371429 (Version 2)
Quarter: 2022Q1

REPORT INFORMATION
  Report Type: Spontaneous
  Country: US (occurrence: US)
  Receive Date: 20220124
  Receipt Date: 20220224
  Transmission Date: 20220423
  Serious: No
  Sender: FDA-Public Use
  Company Number: US-KARYOPHARM-2022KPT000007

PATIENT

DRUGS (17)
  1. XPOVIO [Suspect]
     Active Substance: SELINEXOR
     Indication: Plasma cell myeloma
     Dosage: 80 MG, 2X/WEEK
     Route: 048
     Dates: start: 20211231, end: 202202
  2. ACYCLOVIR [Concomitant]
     Active Substance: ACYCLOVIR
  3. AMLODIPINE [Concomitant]
     Active Substance: AMLODIPINE BESYLATE
  4. BASAGLAR [Concomitant]
     Active Substance: INSULIN GLARGINE
  5. DEXAMETHASONE [Concomitant]
     Active Substance: DEXAMETHASONE
  6. EZETIMIBE [Concomitant]
     Active Substance: EZETIMIBE
  7. FLUCONAZOLE [Concomitant]
     Active Substance: FLUCONAZOLE
  8. GLIMEPIRIDE [Concomitant]
     Active Substance: GLIMEPIRIDE
  9. INDOMETHACIN [Concomitant]
     Active Substance: INDOMETHACIN
  10. LEVAQUIN [Concomitant]
     Active Substance: LEVOFLOXACIN
  11. LEVOTHYROXINE [Concomitant]
     Active Substance: LEVOTHYROXINE
  12. LOSARTAN [Concomitant]
     Active Substance: LOSARTAN
  13. OXYCODONE [Concomitant]
     Active Substance: OXYCODONE
  14. PANTOPRAZOLE [Concomitant]
     Active Substance: PANTOPRAZOLE
  15. TAMSULOSIN [Concomitant]
     Active Substance: TAMSULOSIN
  16. VALACYCLOVIR [Concomitant]
     Active Substance: VALACYCLOVIR HYDROCHLORIDE
  17. POTASSIUM CHLORIDE [Concomitant]
     Active Substance: POTASSIUM CHLORIDE

REACTIONS (5)
  - Blood sodium abnormal [Unknown]
  - Liver function test abnormal [Unknown]
  - Fatigue [Unknown]
  - Asthenia [Unknown]
  - Therapeutic product effect decreased [Unknown]

NARRATIVE: CASE EVENT DATE: 20210101
